FAERS Safety Report 23981869 (Version 1)
Quarter: 2024Q2

REPORT INFORMATION
  Report Type: Spontaneous
  Country: US (occurrence: None)
  Receive Date: 20240616
  Receipt Date: 20240616
  Transmission Date: 20240716
  Serious: Yes (Disabling)
  Sender: FDA-Public Use
  Company Number: None

PATIENT
  Age: 49 Year
  Sex: Female

DRUGS (1)
  1. BRETHINE [Suspect]
     Active Substance: TERBUTALINE SULFATE
     Indication: Premature labour
     Route: 048
     Dates: start: 19920922, end: 19921005

REACTIONS (8)
  - Exposure during pregnancy [None]
  - Maternal drugs affecting foetus [None]
  - Neonatal disorder [None]
  - Hyperaesthesia [None]
  - Anxiety [None]
  - Feeling abnormal [None]
  - Palpitations [None]
  - Ventricular tachycardia [None]

NARRATIVE: CASE EVENT DATE: 20120430
